FAERS Safety Report 5473520-9 (Version None)
Quarter: 2007Q3

REPORT INFORMATION
  Report Type: 
  Country: None (occurrence: None)
  Receive Date: 20070830
  Receipt Date: 20070131
  Transmission Date: 20080115
  Serious: Yes (Other)
  Sender: FDA-Public Use
  Company Number: KADN20070033

PATIENT
  Age: 54 Year
  Sex: Male

DRUGS (3)
  1. KADIAN [Suspect]
  2. MORPHINE SULFATE [Suspect]
  3. AVINZA UNK [Concomitant]

REACTIONS (1)
  - INTENTIONAL OVERDOSE [None]
